FAERS Safety Report 8942526 (Version 3)
Quarter: 2013Q1

REPORT INFORMATION
  Report Type: Spontaneous
  Country: US (occurrence: US)
  Receive Date: 20121204
  Receipt Date: 20130218
  Transmission Date: 20140127
  Serious: Yes (Hospitalization)
  Sender: FDA-Public Use
  Company Number: US-GILEAD-2012-0065585

PATIENT
  Age: 77 Year
  Sex: Female

DRUGS (1)
  1. LETAIRIS [Suspect]
     Indication: PRODUCT USED FOR UNKNOWN INDICATION
     Dosage: 5 MG, UNK
     Route: 048
     Dates: start: 20120530, end: 20121101

REACTIONS (5)
  - Staphylococcal infection [Unknown]
  - Device related infection [Recovered/Resolved]
  - Blood pressure decreased [Unknown]
  - Dialysis [Unknown]
  - Unevaluable event [Unknown]
